FAERS Safety Report 5465435-7 (Version None)
Quarter: 2007Q3

REPORT INFORMATION
  Report Type: 
  Country: None (occurrence: None)
  Receive Date: 20070920
  Receipt Date: 20070920
  Transmission Date: 20080115
  Serious: No
  Sender: FDA-Public Use
  Company Number: None

PATIENT
  Age: 88 Year
  Sex: Male

DRUGS (2)
  1. SIMVASTATIN [Suspect]
     Indication: HYPERLIPIDAEMIA
     Dosage: 80MG HS PO
     Route: 048
     Dates: start: 20060309, end: 20070104
  2. FLUVASTATIN [Suspect]
     Dosage: 40MG HS PO
     Route: 048
     Dates: start: 20070115, end: 20070618

REACTIONS (1)
  - MYALGIA [None]
